APPROVED DRUG PRODUCT: AGGRASTAT
Active Ingredient: TIROFIBAN HYDROCHLORIDE
Strength: EQ 3.75MG BASE/15ML (EQ 0.25MG BASE/ML)
Dosage Form/Route: SOLUTION;INJECTION
Application: N020912 | Product #002
Applicant: MEDICURE INTERNATIONAL INC
Approved: Aug 31, 2016 | RLD: Yes | RS: Yes | Type: RX